FAERS Safety Report 5066183-8 (Version None)
Quarter: 2006Q3

REPORT INFORMATION
  Report Type: 
  Country: None (occurrence: None)
  Receive Date: 20060703
  Receipt Date: 20060407
  Transmission Date: 20061208
  Serious: Yes (Hospitalization, Other)
  Sender: FDA-Public Use
  Company Number: WAES 0604USA01109

PATIENT
  Age: 74 Year
  Sex: Female

DRUGS (6)
  1. HYZAAR [Suspect]
     Indication: HYPERTENSION
     Dosage: 100-25 MG/DAILY/PO
     Route: 048
     Dates: end: 20050901
  2. FOSAMAX [Concomitant]
  3. LIPITOR [Concomitant]
  4. NORVASC [Concomitant]
  5. ZEBETA [Concomitant]
  6. ZETIA [Concomitant]

REACTIONS (1)
  - PANCREATITIS [None]
